FAERS Safety Report 6362002-8 (Version None)
Quarter: 2009Q3

REPORT INFORMATION
  Report Type: 
  Country: None (occurrence: None)
  Receive Date: 20090918
  Receipt Date: 20090909
  Transmission Date: 20100115
  Serious: Yes (Life-Threatening, Hospitalization)
  Sender: FDA-Public Use
  Company Number: CO-AMGEN-US365186

PATIENT
  Age: 8 Year
  Sex: Female

DRUGS (5)
  1. ENBREL [Suspect]
     Indication: JUVENILE ARTHRITIS
     Route: 058
     Dates: start: 20080801, end: 20090801
  2. DEFLAZACORT [Concomitant]
     Dosage: UNKNOWN
     Route: 065
  3. CALCITRIOL [Concomitant]
     Indication: JUVENILE ARTHRITIS
     Route: 065
  4. METHOTREXATE [Concomitant]
     Indication: JUVENILE ARTHRITIS
     Dosage: UNKNOWN
     Route: 065
  5. NAPROXEN [Concomitant]
     Indication: PAIN
     Route: 065

REACTIONS (1)
  - HISTIOCYTOSIS HAEMATOPHAGIC [None]
